FAERS Safety Report 5318968-8 (Version None)
Quarter: 2007Q2

REPORT INFORMATION
  Report Type: 
  Country: None (occurrence: None)
  Receive Date: 20070508
  Receipt Date: 20070502
  Transmission Date: 20071010
  Serious: Yes (Other)
  Sender: FDA-Public Use
  Company Number: AU-AVENTIS-200713907GDDC

PATIENT
  Age: 58 Year
  Sex: Female

DRUGS (1)
  1. ARAVA [Suspect]
     Route: 048
     Dates: start: 19990101, end: 20070402

REACTIONS (1)
  - HEPATIC ENZYME INCREASED [None]
